FAERS Safety Report 8152095 (Version 2)
Quarter: 2013Q1

REPORT INFORMATION
  Report Type: Spontaneous
  Country: US (occurrence: US)
  Receive Date: 20110922
  Receipt Date: 20130215
  Transmission Date: 20140127
  Serious: Yes (Other)
  Sender: FDA-Public Use
  Company Number: US-ASTRAZENECA-2011SE12596

PATIENT
  Sex: Female

DRUGS (13)
  1. SEROQUEL [Suspect]
     Route: 048
  2. SEROQUEL [Suspect]
     Dosage: TAKE ONE TABLET BY MOUTH EVERY EVENING
     Route: 048
     Dates: start: 20090728
  3. CHANTIX [Concomitant]
     Dosage: AS DIRECTED ON PACKAGE
     Dates: start: 20090724
  4. PLAVIX [Concomitant]
     Route: 048
     Dates: start: 20090701
  5. LISINOPRIL [Concomitant]
     Route: 048
     Dates: start: 20090701
  6. CLONAZEPAM [Concomitant]
     Dosage: ONE TABLET BY MOUTH THREE TIMES DAILY AS NEEDED
     Route: 048
     Dates: start: 20090718
  7. DILTIAZEM ER [Concomitant]
     Route: 048
     Dates: start: 20090701
  8. METOPROLOL TAR [Concomitant]
     Dosage: 25 TO 50 MG, ONE TABLET BY MOUTH EVERY DAY
     Route: 048
     Dates: start: 20090701
  9. VYTORIN [Concomitant]
     Dosage: 10/40 MG, ONE TABLET BY MOUTH EVERY DAY
     Route: 048
     Dates: start: 20090723
  10. NAPROXEN [Concomitant]
     Route: 048
     Dates: start: 20090701
  11. NITROSTAT [Concomitant]
     Dosage: 0.4 MG, AS DIRECTED
     Dates: start: 20090701
  12. SUMATRIPTAN [Concomitant]
     Indication: HEADACHE
     Dosage: 100 MG,ONE TAB AT ONSET OF HEADACHE MAY REPEAT IN 2 HOURS NO MORE THAN THREE TABS PER WEEK
     Dates: start: 20090630
  13. TRAMADOL HCL [Concomitant]
     Dosage: 50 MG, TWO TABLETS BY MOTTH THREE TIMES DAILY AS NEEDED
     Route: 048
     Dates: start: 20090630

REACTIONS (3)
  - Pancreatitis [Unknown]
  - Diabetic coma [Unknown]
  - Type 2 diabetes mellitus [Unknown]
